FAERS Safety Report 4760262-8 (Version None)
Quarter: 2005Q3

REPORT INFORMATION
  Report Type: 
  Country: None (occurrence: None)
  Receive Date: 20050902
  Receipt Date: 20050825
  Transmission Date: 20060218
  Serious: Yes (Death)
  Sender: FDA-Public Use
  Company Number: US-ROCHE-415550

PATIENT
  Sex: Female

DRUGS (1)
  1. ACCUTANE [Suspect]
     Indication: ACNE
     Route: 048
     Dates: start: 20010315

REACTIONS (4)
  - COMPLETED SUICIDE [None]
  - DEPRESSION [None]
  - EMOTIONAL DISORDER [None]
  - PSYCHOTIC DISORDER [None]
